FAERS Safety Report 5126992-3 (Version None)
Quarter: 2006Q4

REPORT INFORMATION
  Report Type: 
  Country: None (occurrence: None)
  Receive Date: 20061013
  Receipt Date: 20060718
  Transmission Date: 20070319
  Serious: Yes (Other)
  Sender: FDA-Public Use
  Company Number: US-GLAXOSMITHKLINE-A0612830A

PATIENT
  Age: 27 Year
  Sex: Female
  Weight: 50 kg

DRUGS (2)
  1. LAMICTAL [Suspect]
     Indication: BIPOLAR DISORDER
     Dosage: 50MG PER DAY
     Route: 048
  2. WELLBUTRIN XL [Suspect]
     Dosage: 450MG PER DAY
     Dates: start: 20060504, end: 20060720

REACTIONS (4)
  - CONFUSIONAL STATE [None]
  - CONVULSION [None]
  - CRYING [None]
  - GRAND MAL CONVULSION [None]
